FAERS Safety Report 6673319-1 (Version None)
Quarter: 2010Q1

REPORT INFORMATION
  Report Type: 
  Country: None (occurrence: None)
  Receive Date: 20100329
  Receipt Date: 20091001
  Transmission Date: 20100710
  Serious: Yes (Other)
  Sender: FDA-Public Use
  Company Number: 2009256516

PATIENT
  Age: 35 Year
  Sex: Female

DRUGS (2)
  1. GEODON [Suspect]
     Indication: BIPOLAR I DISORDER
     Dosage: 60 MG, 2X/DAY, ORAL
     Route: 048
  2. LUVOX [Concomitant]

REACTIONS (5)
  - AKATHISIA [None]
  - CONFUSIONAL STATE [None]
  - FEELING JITTERY [None]
  - MUSCULOSKELETAL STIFFNESS [None]
  - VISION BLURRED [None]
